FAERS Safety Report 8125779-7 (Version None)
Quarter: 2012Q1

REPORT INFORMATION
  Report Type: 
  Country: None (occurrence: None)
  Receive Date: 20120209
  Receipt Date: 20120206
  Transmission Date: 20120608
  Serious: No
  Sender: FDA-Public Use
  Company Number: US-BAYER-2012-013024

PATIENT
  Age: 69 Year
  Sex: Female
  Weight: 59 kg

DRUGS (7)
  1. ASPIRIN [Concomitant]
     Dosage: 81 MG, UNK
     Route: 048
  2. ALEVE (CAPLET) [Suspect]
     Indication: ARTHRITIS
     Dosage: 2 TABLETS, BID
     Route: 048
     Dates: start: 20111201, end: 20120201
  3. ACETAMINOPHEN [Concomitant]
     Dosage: 1 U, BID
     Route: 048
  4. BUPROPION HYDROCHLORIDE [Concomitant]
  5. SIMVASTATIN [Concomitant]
  6. OMEPRAZOLE [Concomitant]
  7. PREMARIN [Concomitant]

REACTIONS (1)
  - NO ADVERSE EVENT [None]
